FAERS Safety Report 4867141-6 (Version None)
Quarter: 2005Q4

REPORT INFORMATION
  Report Type: 
  Country: None (occurrence: None)
  Receive Date: 20051222
  Receipt Date: 20051215
  Transmission Date: 20060501
  Serious: Yes (Other)
  Sender: FDA-Public Use
  Company Number: 214613

PATIENT
  Age: 36 Year
  Sex: Female
  Weight: 63.4 kg

DRUGS (8)
  1. XOLAIR [Suspect]
     Indication: ASTHMA
     Dosage: 150 MG, Q4W, SUBCUTANEOUS
     Route: 058
     Dates: start: 20040805
  2. ADVAIR DISKUS 100/50 [Concomitant]
  3. MEDROL [Concomitant]
  4. UNIPHYL [Concomitant]
  5. ZANTAC [Concomitant]
  6. PRENATAL VITS (MINERALS NOS, MULTIVITAMINS NOS) [Concomitant]
  7. SINGULAIR [Concomitant]
  8. FOSAMAX [Concomitant]

REACTIONS (3)
  - CAESAREAN SECTION [None]
  - DRUG EXPOSURE DURING PREGNANCY [None]
  - PREGNANCY [None]
